FAERS Safety Report 11689044 (Version 1)
Quarter: 2015Q4

REPORT INFORMATION
  Report Type: Spontaneous
  Country: US (occurrence: None)
  Receive Date: 20151030
  Receipt Date: 20151030
  Transmission Date: 20160304
  Serious: Yes (Disabling)
  Sender: FDA-Public Use
  Company Number: None

PATIENT
  Age: 68 Year
  Sex: Male
  Weight: 94.35 kg

DRUGS (13)
  1. PRAVASTATIN [Concomitant]
     Active Substance: PRAVASTATIN\PRAVASTATIN SODIUM
  2. UROXARTAL [Concomitant]
  3. METROPROLOL [Concomitant]
     Active Substance: METOPROLOL
  4. VITAMIN D [Concomitant]
     Active Substance: CHOLECALCIFEROL
  5. CENTRUM SILVER [Concomitant]
     Active Substance: MINERALS\VITAMINS
  6. PLAVIX [Concomitant]
     Active Substance: CLOPIDOGREL BISULFATE
  7. ZOLADEX [Suspect]
     Active Substance: GOSERELIN ACETATE
     Indication: PROSTATE CANCER
     Dosage: Q4M, GIVEN INTO/UNDER THE SKIN
     Dates: start: 20151029
  8. REMERON [Concomitant]
     Active Substance: MIRTAZAPINE
  9. PRILOSEC [Concomitant]
     Active Substance: OMEPRAZOLE MAGNESIUM
  10. GLUCOSAMINE [Concomitant]
     Active Substance: GLUCOSAMINE
  11. CALCIUM [Concomitant]
     Active Substance: CALCIUM
  12. VITAMIN C [Concomitant]
     Active Substance: ASCORBIC ACID
  13. CONDROTIN [Concomitant]

REACTIONS (5)
  - Back pain [None]
  - Dizziness [None]
  - Fatigue [None]
  - Gout [None]
  - Dyspnoea [None]

NARRATIVE: CASE EVENT DATE: 20151029
